FAERS Safety Report 22174152 (Version 7)
Quarter: 2025Q1

REPORT INFORMATION
  Report Type: Spontaneous
  Country: US (occurrence: US)
  Receive Date: 20230405
  Receipt Date: 20250320
  Transmission Date: 20250409
  Serious: No
  Sender: DAIICHI
  Company Number: US-DSJP-DSU-2023-112047AA

PATIENT
  Sex: Male

DRUGS (2)
  1. TURALIO [Suspect]
     Active Substance: PEXIDARTINIB HYDROCHLORIDE
     Indication: Synovitis
     Dosage: 250 MG, BID (125MG TWICE DAILY)
     Route: 048
     Dates: start: 20230321
  2. TURALIO [Suspect]
     Active Substance: PEXIDARTINIB HYDROCHLORIDE
     Indication: Giant cell tumour of tendon sheath

REACTIONS (10)
  - Tooth infection [Recovered/Resolved]
  - Headache [Not Recovered/Not Resolved]
  - Arthralgia [Recovered/Resolved]
  - Fatigue [Recovered/Resolved]
  - Hair colour changes [Recovered/Resolved]
  - Therapy interrupted [Unknown]
  - Intentional product use issue [Recovered/Resolved]
  - Intentional dose omission [Recovered/Resolved]
  - Product dose omission in error [Recovered/Resolved]
  - Product dose omission issue [Recovered/Resolved]

NARRATIVE: CASE EVENT DATE: 20230101
